FAERS Safety Report 7154394-7 (Version None)
Quarter: 2010Q4

REPORT INFORMATION
  Report Type: 
  Country: None (occurrence: None)
  Receive Date: 20101213
  Receipt Date: 20101130
  Transmission Date: 20110411
  Serious: No
  Sender: FDA-Public Use
  Company Number: JP-ELI_LILLY_AND_COMPANY-JP201011000006

PATIENT
  Age: 26 Year
  Sex: Female

DRUGS (5)
  1. CYMBALTA [Suspect]
     Indication: DEPRESSION
     Dosage: 40 MG, DAILY (1/D)
     Route: 048
     Dates: start: 20100824, end: 20101008
  2. CYMBALTA [Suspect]
     Dosage: 50 MG, DAILY (1/D)
     Route: 048
     Dates: start: 20101009, end: 20101025
  3. DEPROMEL [Concomitant]
     Indication: DEPRESSION
     Dosage: 100 MG, DAILY (1/D)
     Route: 048
  4. DEPROMEL [Concomitant]
     Dosage: 25 MG, DAILY (1/D)
     Route: 048
  5. SEPAZON [Concomitant]
     Dosage: 3 MG, DAILY (1/D)
     Route: 048

REACTIONS (2)
  - LIVER DISORDER [None]
  - URTICARIA [None]
